FAERS Safety Report 23077664 (Version 3)
Quarter: 2024Q2

REPORT INFORMATION
  Report Type: Spontaneous
  Country: JP (occurrence: JP)
  Receive Date: 20231018
  Receipt Date: 20240627
  Transmission Date: 20240715
  Serious: Yes (Other)
  Sender: FDA-Public Use
  Company Number: JP-BRISTOL-MYERS SQUIBB COMPANY-2023-146749

PATIENT
  Age: 7 Decade
  Sex: Female

DRUGS (4)
  1. YERVOY [Suspect]
     Active Substance: IPILIMUMAB
     Indication: Malignant melanoma
     Route: 041
  2. OPDIVO [Suspect]
     Active Substance: NIVOLUMAB
     Indication: Malignant melanoma
  3. OPDIVO [Suspect]
     Active Substance: NIVOLUMAB
     Dosage: 2 DOSES
  4. OPDIVO [Suspect]
     Active Substance: NIVOLUMAB

REACTIONS (4)
  - Small intestinal haemorrhage [Unknown]
  - Malignant neoplasm progression [Unknown]
  - Anaemia [Unknown]
  - Abdominal pain [Recovering/Resolving]
